FAERS Safety Report 26139624 (Version 1)
Quarter: 2025Q4

REPORT INFORMATION
  Report Type: Spontaneous
  Country: JP (occurrence: JP)
  Receive Date: 20251210
  Receipt Date: 20251210
  Transmission Date: 20260118
  Serious: Yes (Hospitalization, Other)
  Sender: CHEPLAPHARM
  Company Number: JP-CP_KK-2025JP005483

PATIENT
  Age: 77 Year
  Sex: Female

DRUGS (8)
  1. CAPECITABINE [Suspect]
     Active Substance: CAPECITABINE
     Indication: Colon cancer
     Dosage: 7 COURSES?DAILY DOSE: 1800 MILLIGRAM
     Route: 048
  2. OXALIPLATIN [Suspect]
     Active Substance: OXALIPLATIN
     Indication: Colon cancer
     Dosage: 7 COURSES
  3. Bifuroxin [Concomitant]
     Dosage: DAILY DOSE: 30 MILLIGRAM
     Route: 048
  4. Bifuroxin [Concomitant]
     Dosage: DAILY DOSE: 60 MILLIGRAM
     Route: 048
  5. METOCLOPRAMIDE [Concomitant]
     Active Substance: METOCLOPRAMIDE
     Dosage: DAILY DOSE: 15 MILLIGRAM
     Route: 048
  6. LANSOPRAZOLE [Concomitant]
     Active Substance: LANSOPRAZOLE
     Dosage: DAILY DOSE: 15 MILLIGRAM
     Route: 048
  7. ATORVASTATIN [Concomitant]
     Active Substance: ATORVASTATIN
     Dosage: DAILY DOSE: 5 MILLIGRAM
     Route: 048
  8. ETIZOLAM [Concomitant]
     Active Substance: ETIZOLAM
     Dosage: DAILY DOSE: 0.5 MILLIGRAM
     Route: 048

REACTIONS (6)
  - Pulmonary arteriovenous fistula [Recovering/Resolving]
  - Lung abscess [Recovering/Resolving]
  - Respiratory depression [Recovering/Resolving]
  - Depressed level of consciousness [Recovering/Resolving]
  - Bronchostenosis [Recovering/Resolving]
  - Pleural effusion [Recovering/Resolving]
